FAERS Safety Report 14111740 (Version 2)
Quarter: 2017Q4

REPORT INFORMATION
  Report Type: Spontaneous
  Country: CA (occurrence: CA)
  Receive Date: 20171020
  Receipt Date: 20171106
  Transmission Date: 20180321
  Serious: Yes (Hospitalization)
  Sender: FDA-Public Use
  Company Number: CA-FERRINGPH-2017FE04956

PATIENT

DRUGS (2)
  1. SYNTHROID [Concomitant]
     Active Substance: LEVOTHYROXINE SODIUM
     Indication: HYPOTHYROIDISM
     Dosage: UNK
     Route: 065
     Dates: start: 1990
  2. PICO-SALAX [Suspect]
     Active Substance: ANHYDROUS CITRIC ACID\MAGNESIUM OXIDE\SODIUM PICOSULFATE
     Indication: BOWEL PREPARATION
     Dosage: 1 SACHET ONCE, AT 2:00PM
     Route: 048
     Dates: start: 20170926, end: 20170926

REACTIONS (13)
  - Hyponatraemia [Unknown]
  - Seizure [Recovered/Resolved with Sequelae]
  - Throat irritation [Recovered/Resolved]
  - Back pain [Unknown]
  - Nausea [Not Recovered/Not Resolved]
  - Dysphagia [Recovered/Resolved]
  - Amnesia [Not Recovered/Not Resolved]
  - Altered state of consciousness [Recovered/Resolved with Sequelae]
  - Dislocation of vertebra [Not Recovered/Not Resolved]
  - Shock [Not Recovered/Not Resolved]
  - Tremor [Recovered/Resolved]
  - Dizziness [Recovered/Resolved]
  - Muscle rigidity [Not Recovered/Not Resolved]

NARRATIVE: CASE EVENT DATE: 201709
